FAERS Safety Report 13276846 (Version 4)
Quarter: 2017Q2

REPORT INFORMATION
  Report Type: Report from Study
  Country: None (occurrence: US)
  Receive Date: 20170228
  Receipt Date: 20170619
  Transmission Date: 20170830
  Serious: Yes (Other)
  Sender: FDA-Public Use
  Company Number: US-ABBVIE-17K-163-1885030-00

PATIENT
  Age: 38 Year
  Sex: Female

DRUGS (1)
  1. HUMIRA [Suspect]
     Active Substance: ADALIMUMAB
     Indication: RHEUMATOID ARTHRITIS
     Route: 058
     Dates: start: 20170217, end: 20170413

REACTIONS (7)
  - Supraventricular tachycardia [Recovered/Resolved]
  - Abdominal pain upper [Unknown]
  - Headache [Recovered/Resolved]
  - Diarrhoea [Unknown]
  - Nausea [Recovered/Resolved]
  - Nausea [Recovered/Resolved]
  - Drug hypersensitivity [Unknown]

NARRATIVE: CASE EVENT DATE: 201702
